FAERS Safety Report 5183299-6 (Version None)
Quarter: 2006Q4

REPORT INFORMATION
  Report Type: 
  Country: None (occurrence: None)
  Receive Date: 20061220
  Receipt Date: 20060106
  Transmission Date: 20070319
  Serious: No
  Sender: FDA-Public Use
  Company Number: US-GLAXOSMITHKLINE-A0588070A

PATIENT
  Age: 25 Year
  Sex: Female

DRUGS (1)
  1. TARGET NTS 14MG [Suspect]
     Indication: SMOKING CESSATION THERAPY
     Dates: start: 20060105

REACTIONS (1)
  - MYDRIASIS [None]
